FAERS Safety Report 7730633-6 (Version None)
Quarter: 2011Q3

REPORT INFORMATION
  Report Type: 
  Country: None (occurrence: None)
  Receive Date: 20110901
  Receipt Date: 20110901
  Transmission Date: 20111222
  Serious: Yes (Other)
  Sender: FDA-Public Use
  Company Number: None

PATIENT
  Age: 57 Year
  Sex: Female
  Weight: 52.1637 kg

DRUGS (2)
  1. VENLAFAXINE HCL [Suspect]
     Indication: DYSTHYMIC DISORDER
     Dosage: 150 MG ONCE DAILY PO
     Route: 048
     Dates: start: 20110618, end: 20110715
  2. VENLAFAXINE HCL [Suspect]
     Indication: DYSTHYMIC DISORDER
     Dosage: 150 MG ONCE DAILY PO
     Route: 048
     Dates: start: 20110716

REACTIONS (1)
  - PRODUCT SUBSTITUTION ISSUE [None]
